FAERS Safety Report 25936726 (Version 4)
Quarter: 2025Q4

REPORT INFORMATION
  Report Type: Spontaneous
  Country: US (occurrence: US)
  Receive Date: 20251017
  Receipt Date: 20251125
  Transmission Date: 20260119
  Serious: Yes (Other)
  Sender: ROCHE
  Company Number: US-ROCHE-10000405259

PATIENT
  Age: 89 Year
  Sex: Female

DRUGS (5)
  1. SUSVIMO [Suspect]
     Active Substance: RANIBIZUMAB
     Indication: Neovascular age-related macular degeneration
     Dosage: SUSVIMO PDS IMPLANT IN LEFT EYE
     Route: 050
  2. SUSVIMO [Suspect]
     Active Substance: RANIBIZUMAB
     Dosage: SUSVIMO PDS IMPLANT IN RIGHT EYE
     Route: 050
  3. SUSVIMO [Suspect]
     Active Substance: RANIBIZUMAB
  4. SUSVIMO [Suspect]
     Active Substance: RANIBIZUMAB
  5. SUSVIMO [Suspect]
     Active Substance: RANIBIZUMAB

REACTIONS (3)
  - Device use error [Unknown]
  - Device dislocation [Unknown]
  - No adverse event [Unknown]

NARRATIVE: CASE EVENT DATE: 20251006
